FAERS Safety Report 8123426-1 (Version None)
Quarter: 2012Q1

REPORT INFORMATION
  Report Type: 
  Country: None (occurrence: None)
  Receive Date: 20120208
  Receipt Date: 20120202
  Transmission Date: 20120608
  Serious: Yes (Other)
  Sender: FDA-Public Use
  Company Number: US-PFIZER INC-2012023398

PATIENT
  Sex: Female
  Weight: 68.027 kg

DRUGS (8)
  1. ZOCOR [Suspect]
     Indication: CARDIAC DISORDER
  2. LIPITOR [Suspect]
     Indication: MYOCARDIAL INFARCTION
  3. LIPITOR [Suspect]
     Indication: BLOOD CHOLESTEROL INCREASED
     Dosage: 40 MG, 1X/DAY
     Route: 048
     Dates: start: 20120115, end: 20120117
  4. LIPITOR [Suspect]
     Indication: VASCULAR GRAFT
  5. ARICEPT [Concomitant]
     Indication: MEMORY IMPAIRMENT
     Dosage: 10 MG, UNK
  6. AMLODIPINE [Concomitant]
     Indication: HYPERTENSION
     Dosage: UNK
  7. ZOCOR [Suspect]
     Indication: ARTERIAL OCCLUSIVE DISEASE
     Dosage: UNK
     Dates: end: 20111201
  8. NAMENDA [Concomitant]
     Indication: MEMORY IMPAIRMENT
     Dosage: 10 MG, UNK

REACTIONS (5)
  - BLINDNESS [None]
  - MUSCLE SPASMS [None]
  - MUSCULAR WEAKNESS [None]
  - GAIT DISTURBANCE [None]
  - DYSSTASIA [None]
